FAERS Safety Report 23159858 (Version 3)
Quarter: 2024Q1

REPORT INFORMATION
  Report Type: Report from Study
  Country: MX (occurrence: MX)
  Receive Date: 20231108
  Receipt Date: 20240331
  Transmission Date: 20240409
  Serious: Yes (Hospitalization, Other)
  Sender: FDA-Public Use
  Company Number: MX-002147023-NVSC2023MX238315

PATIENT
  Sex: Male
  Weight: 90 kg

DRUGS (10)
  1. GLIVEC [Suspect]
     Active Substance: IMATINIB MESYLATE
     Indication: Chronic myeloid leukaemia
     Dosage: 4 DOSAGE FORM, QD (100 MG)
     Route: 048
     Dates: start: 20170711, end: 202401
  2. GLIVEC [Suspect]
     Active Substance: IMATINIB MESYLATE
     Dosage: 3 DOSAGE FORM, QD (3 OF 100MG)
     Route: 048
     Dates: start: 201807, end: 202311
  3. VITAMIN B COMPLEX [Concomitant]
     Active Substance: CYANOCOBALAMIN\DEXPANTHENOL\NIACINAMIDE\PYRIDOXINE HYDROCHLORIDE\RIBOFLAVIN 5^-PHOSPHATE SODIUM\THIA
     Indication: Hypovitaminosis
     Dosage: 1 DOSAGE FORM, Q24H (SEVERAL YEARS AGO, UNKNOWN EXACT DATE)
     Route: 048
  4. ATORVASTATIN [Concomitant]
     Active Substance: ATORVASTATIN
     Indication: Product used for unknown indication
     Dosage: 1 DOSAGE FORM, QD (20 MG)
     Route: 048
     Dates: start: 202310
  5. INSULIN GLARGINE [Concomitant]
     Active Substance: INSULIN GLARGINE
     Indication: Diabetes mellitus
     Dosage: 30 IU, QD
     Route: 058
  6. ASPIRIN [Concomitant]
     Active Substance: ASPIRIN
     Indication: Product used for unknown indication
     Dosage: 300 MG, Q24H (1/2 TABLET)
     Route: 048
     Dates: start: 20240317
  7. ACETAMINOPHEN [Concomitant]
     Active Substance: ACETAMINOPHEN
     Indication: Diabetic neuropathy
     Dosage: 1 DOSAGE FORM, PRN (SEVERAL YEARS AGO, UNKNOWN EXACT DATE)
     Route: 048
     Dates: start: 20240310
  8. PANTOPRAZOLE [Concomitant]
     Active Substance: PANTOPRAZOLE
     Indication: Abdominal discomfort
     Dosage: 1 DOSAGE FORM, Q24H (SEVERAL YEARS AGO, UNKNOWN EXACT DATE)
     Route: 048
  9. DAPAGLIFLOZIN [Concomitant]
     Active Substance: DAPAGLIFLOZIN
     Indication: Diabetes mellitus
     Dosage: 1 DOSAGE FORM, Q24H (UNKNOWN EXACT DATE)
     Route: 048
     Dates: start: 2022
  10. DAPAGLIFLOZIN [Concomitant]
     Active Substance: DAPAGLIFLOZIN
     Dosage: 1 DOSAGE FORM, Q24H (10 MG)
     Route: 048
     Dates: start: 20240317

REACTIONS (16)
  - Peripheral vascular disorder [Not Recovered/Not Resolved]
  - Diabetes mellitus [Unknown]
  - Blindness [Recovered/Resolved with Sequelae]
  - Retinal detachment [Recovered/Resolved with Sequelae]
  - Retinal detachment [Unknown]
  - Glaucoma [Not Recovered/Not Resolved]
  - Arrhythmia [Not Recovered/Not Resolved]
  - Foreign body sensation in eyes [Not Recovered/Not Resolved]
  - Depression [Unknown]
  - Skin ulcer [Not Recovered/Not Resolved]
  - Drug resistance [Unknown]
  - Anxiety [Not Recovered/Not Resolved]
  - Hypertension [Not Recovered/Not Resolved]
  - Vision blurred [Unknown]
  - Acne [Unknown]
  - Acne pustular [Unknown]

NARRATIVE: CASE EVENT DATE: 20180101
